FAERS Safety Report 8329404-1 (Version None)
Quarter: 2012Q2

REPORT INFORMATION
  Report Type: 
  Country: None (occurrence: None)
  Receive Date: 20120502
  Receipt Date: 20120426
  Transmission Date: 20120825
  Serious: Yes (Death, Hospitalization)
  Sender: FDA-Public Use
  Company Number: IE-PFIZER INC-2012036435

PATIENT
  Age: 43 Year
  Sex: Male

DRUGS (7)
  1. LIPITOR [Suspect]
     Dosage: 40 MG, UNK
     Route: 048
     Dates: start: 20080215, end: 20111104
  2. LIPITOR [Suspect]
     Indication: BLOOD CHOLESTEROL INCREASED
     Dosage: 20 MG, UNK
     Dates: start: 20070901
  3. ASACOLON [Concomitant]
     Indication: COLITIS ULCERATIVE
     Dosage: UNK
     Route: 048
     Dates: start: 20110701
  4. FLUCLOXACILLIN [Suspect]
     Indication: SEPSIS
     Dosage: 1-2 G, FOUR TIMES DAILY
     Route: 042
     Dates: start: 20111019, end: 20111101
  5. URSO FALK [Concomitant]
     Indication: LIVER DISORDER
     Dosage: UNK
     Route: 048
     Dates: start: 20110701
  6. ESOMEPRAZOLE [Suspect]
     Indication: VASODILATATION
     Dosage: 20 MG, UNK
     Route: 048
     Dates: end: 20111107
  7. FLUCLOXACILLIN [Suspect]
     Dosage: 1-2G, FOUR TIMES DAILY
     Route: 042
     Dates: start: 20111104, end: 20111108

REACTIONS (3)
  - RENAL IMPAIRMENT [None]
  - GASTROINTESTINAL HAEMORRHAGE [None]
  - RHABDOMYOLYSIS [None]
